FAERS Safety Report 6120813-8 (Version None)
Quarter: 2009Q1

REPORT INFORMATION
  Report Type: 
  Country: None (occurrence: None)
  Receive Date: 20090312
  Receipt Date: 20090227
  Transmission Date: 20090719
  Serious: Yes (Life-Threatening, Hospitalization)
  Sender: FDA-Public Use
  Company Number: DSA_33303_2009

PATIENT
  Age: 50 Year
  Sex: Female

DRUGS (4)
  1. LORAZEPAM [Suspect]
     Indication: SLEEP DISORDER
     Dosage: (1 MG BID ORAL)
     Route: 048
     Dates: start: 20081015, end: 20081202
  2. LEVOTHYROXINE SODIUM [Suspect]
     Indication: HYPOTHYROIDISM
     Dosage: (187.5 UG TID ORAL), (REDUCED DAILY DOSE ORAL), (125 UG QD ORAL)
     Route: 048
     Dates: end: 20080401
  3. LEVOTHYROXINE SODIUM [Suspect]
     Indication: HYPOTHYROIDISM
     Dosage: (187.5 UG TID ORAL), (REDUCED DAILY DOSE ORAL), (125 UG QD ORAL)
     Route: 048
     Dates: start: 20080401, end: 20081202
  4. LEVOTHYROXINE SODIUM [Suspect]
     Indication: HYPOTHYROIDISM
     Dosage: (187.5 UG TID ORAL), (REDUCED DAILY DOSE ORAL), (125 UG QD ORAL)
     Route: 048
     Dates: start: 20081203

REACTIONS (9)
  - ALANINE AMINOTRANSFERASE ABNORMAL [None]
  - ASPARTATE AMINOTRANSFERASE ABNORMAL [None]
  - CONDITION AGGRAVATED [None]
  - INTENTIONAL OVERDOSE [None]
  - NERVOUSNESS [None]
  - POTENTIATING DRUG INTERACTION [None]
  - RESTLESSNESS [None]
  - SLEEP DISORDER [None]
  - TACHYCARDIA [None]
